FAERS Safety Report 8121217-9 (Version None)
Quarter: 2012Q1

REPORT INFORMATION
  Report Type: 
  Country: None (occurrence: None)
  Receive Date: 20120208
  Receipt Date: 20120131
  Transmission Date: 20120608
  Serious: Yes (Other)
  Sender: FDA-Public Use
  Company Number: US-CELGENEUS-163-21880-12020083

PATIENT

DRUGS (1)
  1. REVLIMID [Suspect]
     Route: 048

REACTIONS (8)
  - GRAFT VERSUS HOST DISEASE IN LIVER [None]
  - GRAFT VERSUS HOST DISEASE IN SKIN [None]
  - RASH [None]
  - LIVER FUNCTION TEST ABNORMAL [None]
  - ENGRAFTMENT SYNDROME [None]
  - PYREXIA [None]
  - GRAFT VERSUS HOST DISEASE IN INTESTINE [None]
  - DIARRHOEA [None]
